FAERS Safety Report 8277199-2 (Version None)
Quarter: 2012Q2

REPORT INFORMATION
  Report Type: 
  Country: None (occurrence: None)
  Receive Date: 20120412
  Receipt Date: 20120405
  Transmission Date: 20120825
  Serious: Yes (Other)
  Sender: FDA-Public Use
  Company Number: US-GLAXOSMITHKLINE-A0794162A

PATIENT
  Age: 78 Year
  Sex: Female

DRUGS (2)
  1. AVANDAMET [Suspect]
     Route: 065
  2. AVANDIA [Suspect]
     Indication: TYPE 2 DIABETES MELLITUS
     Dosage: 4U PER DAY
     Route: 048
     Dates: start: 20020701, end: 20080101

REACTIONS (3)
  - PULMONARY THROMBOSIS [None]
  - DYSPNOEA [None]
  - FATIGUE [None]
